FAERS Safety Report 5228369-9 (Version None)
Quarter: 2007Q1

REPORT INFORMATION
  Report Type: 
  Country: None (occurrence: None)
  Receive Date: 20070131
  Receipt Date: 20070131
  Transmission Date: 20070707
  Serious: Yes (Other)
  Sender: FDA-Public Use
  Company Number: None

PATIENT
  Age: 91 Year
  Sex: Male

DRUGS (10)
  1. MONOPRIL [Suspect]
     Indication: HYPERTENSION
     Dosage: 40MG DAILY PO
     Route: 048
     Dates: start: 20050928
  2. ASPIRIN [Concomitant]
  3. LASIX [Concomitant]
  4. FLOMAX [Concomitant]
  5. GLIPIZIDE [Concomitant]
  6. POTASSIUM CHLORIDE [Concomitant]
  7. DIGITEK [Concomitant]
  8. LASIX [Concomitant]
  9. CASODEX [Concomitant]
  10. MONOPRIL [Concomitant]

REACTIONS (2)
  - DRUG ERUPTION [None]
  - NEURODERMATITIS [None]
